FAERS Safety Report 6178020-9 (Version None)
Quarter: 2009Q2

REPORT INFORMATION
  Report Type: 
  Country: None (occurrence: None)
  Receive Date: 20090504
  Receipt Date: 20090122
  Transmission Date: 20091009
  Serious: No
  Sender: FDA-Public Use
  Company Number: US-ALEXION-A200900058

PATIENT
  Sex: Male

DRUGS (5)
  1. SOLIRIS [Suspect]
     Indication: PAROXYSMAL NOCTURNAL HAEMOGLOBINURIA
     Dosage: 600 MG, QWKX4WKS
     Route: 042
     Dates: start: 20070522, end: 20070601
  2. SOLIRIS [Suspect]
     Dosage: 900 MG, Q2WKS
     Route: 042
     Dates: start: 20070701
  3. NEUPOGEN [Suspect]
     Dosage: 30 MG, QWK
     Route: 058
  4. DESFERAL                           /00062903/ [Concomitant]
     Dosage: 1000 MG, 3XWK
     Route: 042
  5. FOLIC ACID [Concomitant]
     Dosage: 1 MG, QD
     Route: 048

REACTIONS (1)
  - PAIN [None]
